FAERS Safety Report 6933797-7 (Version None)
Quarter: 2010Q3

REPORT INFORMATION
  Report Type: 
  Country: None (occurrence: None)
  Receive Date: 20100820
  Receipt Date: 20100809
  Transmission Date: 20110219
  Serious: Yes (Hospitalization, Other)
  Sender: FDA-Public Use
  Company Number: US-PFIZER INC-2010044569

PATIENT
  Sex: Male

DRUGS (6)
  1. CHANTIX [Suspect]
     Indication: SMOKING CESSATION THERAPY
     Dosage: UNK
     Dates: start: 20070409, end: 20070519
  2. HYDROCODONE [Concomitant]
     Indication: BACK PAIN
     Dosage: UNK
     Dates: start: 20010101, end: 20080101
  3. CLONAZEPAM [Concomitant]
     Indication: STRESS
     Dosage: UNK
     Dates: start: 20010101
  4. TRAMADOL [Concomitant]
     Indication: BACK PAIN
     Dosage: UNK
     Dates: start: 20040101
  5. OXYCODONE [Concomitant]
     Indication: BACK PAIN
     Dosage: UNK
     Dates: start: 20040101
  6. KLONOPIN [Concomitant]
     Indication: PANIC ATTACK
     Dosage: UNK
     Dates: start: 20010101

REACTIONS (2)
  - GRAND MAL CONVULSION [None]
  - MENTAL DISORDER [None]
